FAERS Safety Report 23944701 (Version 1)
Quarter: 2024Q2

REPORT INFORMATION
  Report Type: Spontaneous
  Country: US (occurrence: US)
  Receive Date: 20240606
  Receipt Date: 20240606
  Transmission Date: 20240716
  Serious: Yes (Death, Life-Threatening, Other)
  Sender: FDA-Public Use
  Company Number: US-AMGEN-USASP2024107423

PATIENT

DRUGS (8)
  1. FILGRASTIM [Suspect]
     Active Substance: FILGRASTIM
     Indication: Diffuse large B-cell lymphoma
     Dosage: UNK
     Route: 065
  2. PREDNISONE [Suspect]
     Active Substance: PREDNISONE
     Indication: Diffuse large B-cell lymphoma
     Dosage: 100 MILLIGRAM, QD ( ON DAYS 1 THROUGH 5) STARTING ON DAY 1 OF ALL CYCLES)
     Route: 048
  3. LENALIDOMIDE [Concomitant]
     Active Substance: LENALIDOMIDE
  4. OBINUTUZUMAB [Concomitant]
     Active Substance: OBINUTUZUMAB
  5. CYCLOPHOSPHAMIDE [Concomitant]
     Active Substance: CYCLOPHOSPHAMIDE
     Dosage: 750 MILLIGRAM/SQ. METER
  6. DOXORUBICIN [Concomitant]
     Active Substance: DOXORUBICIN
     Dosage: 50 MILLIGRAM/SQ. METER
  7. VINCRISTINE [Concomitant]
     Active Substance: VINCRISTINE
     Dosage: 1.4 MILLIGRAM/SQ. METER
  8. ASPIRIN [Concomitant]
     Active Substance: ASPIRIN
     Dosage: 81 MILLIGRAM

REACTIONS (17)
  - Death [Fatal]
  - Myelodysplastic syndrome [Fatal]
  - Diffuse large B-cell lymphoma recurrent [Fatal]
  - Cerebrovascular accident [Fatal]
  - Neutropenia [Unknown]
  - Embolism venous [Unknown]
  - Febrile neutropenia [Unknown]
  - Infection [Unknown]
  - Peripheral sensory neuropathy [Unknown]
  - Thrombocytopenia [Unknown]
  - Fatigue [Unknown]
  - Myalgia [Unknown]
  - Pain [Unknown]
  - Constipation [Unknown]
  - Nausea [Unknown]
  - Anaemia [Unknown]
  - Diarrhoea [Unknown]
